FAERS Safety Report 25195151 (Version 1)
Quarter: 2025Q2

REPORT INFORMATION
  Report Type: Spontaneous
  Country: US (occurrence: US)
  Receive Date: 20250415
  Receipt Date: 20250415
  Transmission Date: 20250716
  Serious: No
  Sender: SANOFI AVENTIS
  Company Number: US-SA-2025SA102614

PATIENT
  Age: 88 Year
  Sex: Female

DRUGS (1)
  1. DUPIXENT [Suspect]
     Active Substance: DUPILUMAB
     Indication: Neurodermatitis
     Dosage: 300 MG QOW
     Route: 058
     Dates: start: 202501

REACTIONS (6)
  - Skin ulcer [Unknown]
  - Pruritus [Unknown]
  - Scratch [Unknown]
  - Condition aggravated [Unknown]
  - Skin haemorrhage [Unknown]
  - Scab [Unknown]

NARRATIVE: CASE EVENT DATE: 20250101
